FAERS Safety Report 4459499-7 (Version None)
Quarter: 2004Q3

REPORT INFORMATION
  Report Type: 
  Country: None (occurrence: None)
  Receive Date: 20040910
  Receipt Date: 20040730
  Transmission Date: 20050211
  Serious: Yes (Other)
  Sender: FDA-Public Use
  Company Number: 2004226266US

PATIENT
  Age: 56 Year
  Sex: Male
  Weight: 97.1 kg

DRUGS (3)
  1. BEXTRA [Suspect]
     Indication: ARTHRITIS
     Dosage: 20 MG, QD, ORAL
     Route: 048
     Dates: start: 20040701
  2. CELEBREX [Suspect]
     Indication: ARTHRITIS
  3. INSULIN [Concomitant]

REACTIONS (1)
  - WHITE BLOOD CELL ANALYSIS DECREASED [None]
